FAERS Safety Report 9034288 (Version 1)
Quarter: 2013Q1

REPORT INFORMATION
  Report Type: Spontaneous
  Country: US (occurrence: None)
  Receive Date: 20130114
  Receipt Date: 20130114
  Transmission Date: 20140127
  Serious: Yes (Other)
  Sender: FDA-Public Use
  Company Number: FK201300033

PATIENT
  Age: 60 Year
  Sex: Male

DRUGS (1)
  1. ROPIVACAINE [Suspect]
     Indication: ANAESTHESIA

REACTIONS (5)
  - Mononeuropathy [None]
  - Denervation atrophy [None]
  - Musculoskeletal pain [None]
  - Muscle atrophy [None]
  - Winged scapula [None]
